FAERS Safety Report 25423281 (Version 1)
Quarter: 2025Q2

REPORT INFORMATION
  Report Type: Spontaneous
  Country: US (occurrence: None)
  Receive Date: 20250611
  Receipt Date: 20250611
  Transmission Date: 20250717
  Serious: Yes (Hospitalization)
  Sender: FDA-CTU
  Company Number: None

PATIENT
  Age: 76 Year
  Sex: Female

DRUGS (3)
  1. DULOXETINE HYDROCHLORIDE [Suspect]
     Active Substance: DULOXETINE HYDROCHLORIDE
     Indication: Pain
     Dosage: FREQUENCY : DAILY;?
     Route: 048
     Dates: end: 20250515
  2. PREGABALIN [Concomitant]
     Active Substance: PREGABALIN
  3. GABAPENTIN [Concomitant]
     Active Substance: GABAPENTIN

REACTIONS (7)
  - Generalised tonic-clonic seizure [None]
  - Tremor [None]
  - Confusional state [None]
  - Mydriasis [None]
  - Feeling jittery [None]
  - Headache [None]
  - Nausea [None]

NARRATIVE: CASE EVENT DATE: 20250515
